FAERS Safety Report 10978463 (Version 1)
Quarter: 2015Q1

REPORT INFORMATION
  Report Type: Spontaneous
  Country: US (occurrence: None)
  Receive Date: 20150226
  Receipt Date: 20150226
  Transmission Date: 20150721
  Serious: No
  Sender: FDA-Public Use
  Company Number: TPA2009A02757

PATIENT
  Age: 32 Year
  Sex: Female

DRUGS (4)
  1. UNKNOWN ANTIBIOTICS (ANTIBIOTICS) [Concomitant]
  2. LASIX [Concomitant]
     Active Substance: FUROSEMIDE
  3. PREDNISONE. [Concomitant]
     Active Substance: PREDNISONE
  4. ULORIC [Suspect]
     Active Substance: FEBUXOSTAT
     Indication: GOUT
     Route: 048
     Dates: start: 2009

REACTIONS (1)
  - Rash [None]

NARRATIVE: CASE EVENT DATE: 2009
